FAERS Safety Report 7217806-6 (Version None)
Quarter: 2011Q1

REPORT INFORMATION
  Report Type: 
  Country: None (occurrence: None)
  Receive Date: 20110110
  Receipt Date: 20101230
  Transmission Date: 20110831
  Serious: Yes (Other)
  Sender: FDA-Public Use
  Company Number: GXKR2010GB13445

PATIENT
  Age: 46 Year
  Sex: Male

DRUGS (3)
  1. INDOMETHACIN [Suspect]
     Indication: BACK PAIN
     Dosage: 75 MG, BID
     Route: 048
     Dates: start: 20101102, end: 20101103
  2. ZOLPIDEM [Interacting]
     Dosage: 10 MG, ONE AT NIGHT AS REQUIRED
  3. ATORVASTATIN [Concomitant]
     Dosage: 10 MG, ONE AT NIGHT

REACTIONS (3)
  - MEMORY IMPAIRMENT [None]
  - AMNESIA [None]
  - SOMNOLENCE [None]
